FAERS Safety Report 9090353 (Version 1)
Quarter: 2013Q1

REPORT INFORMATION
  Report Type: Spontaneous
  Country: US (occurrence: US)
  Receive Date: 20130201
  Receipt Date: 20130201
  Transmission Date: 20140127
  Serious: No
  Sender: FDA-Public Use
  Company Number: US-ABBOTT-12P-163-1017992-00

PATIENT
  Sex: Male
  Weight: 102.15 kg

DRUGS (7)
  1. HUMIRA [Suspect]
     Indication: PSORIASIS
  2. HUMIRA [Suspect]
     Indication: PSORIATIC ARTHROPATHY
     Dates: start: 20121201, end: 20121201
  3. METHOTREXATE [Suspect]
     Indication: PSORIASIS
  4. METHOTREXATE [Suspect]
     Indication: PSORIATIC ARTHROPATHY
  5. DIFLUCAN [Concomitant]
     Indication: NAIL PSORIASIS
  6. STELARA [Concomitant]
     Indication: PSORIASIS
  7. STELARA [Concomitant]
     Indication: PSORIATIC ARTHROPATHY

REACTIONS (4)
  - Hepatic enzyme increased [Recovered/Resolved]
  - Arthritis [Recovered/Resolved]
  - Psoriasis [Recovered/Resolved]
  - Drug ineffective [Recovered/Resolved]
